FAERS Safety Report 9851148 (Version 1)
Quarter: 2014Q1

REPORT INFORMATION
  Report Type: Spontaneous
  Country: JP (occurrence: JP)
  Receive Date: 20140128
  Receipt Date: 20140128
  Transmission Date: 20141002
  Serious: Yes (Other)
  Sender: FDA-Public Use
  Company Number: JP-GILEAD-2014-0092997

PATIENT
  Sex: Male

DRUGS (3)
  1. TRUVADA [Suspect]
     Route: 065
  2. RALTEGRAVIR [Concomitant]
  3. RILPIVIRINE HYDROCHLORIDE [Concomitant]

REACTIONS (2)
  - Virologic failure [Unknown]
  - Genotype drug resistance test positive [Unknown]
